FAERS Safety Report 4549087-6 (Version None)
Quarter: 2004Q4

REPORT INFORMATION
  Report Type: 
  Country: None (occurrence: None)
  Receive Date: 20041227
  Receipt Date: 20041014
  Transmission Date: 20050328
  Serious: No
  Sender: FDA-Public Use
  Company Number: 04P-163-0277664-00

PATIENT
  Age: 58 Year
  Sex: Female

DRUGS (14)
  1. HUMIRA [Suspect]
     Indication: RHEUMATOID ARTHRITIS
     Dosage: 40 MG, 1 IN 2 WK, SUBCUTANEOUS
     Route: 058
     Dates: start: 20030101
  2. PREDNISONE [Concomitant]
  3. METHOTREXATE [Concomitant]
  4. IBUPROFEN [Concomitant]
  5. ESTROGENS CONJUGATED [Concomitant]
  6. FOLIC ACID [Concomitant]
  7. FOLINIC ACID [Concomitant]
  8. ALENDRONATE SODIUM [Concomitant]
  9. LISINOPRIL [Concomitant]
  10. MECLIZINE [Concomitant]
  11. ZOLPIDEM TARTRATE [Concomitant]
  12. ACETAMINOPHEN W/ CODEINE [Concomitant]
  13. VICODIN [Concomitant]
  14. AXOTAL [Concomitant]

REACTIONS (1)
  - NODULE [None]
